FAERS Safety Report 8660455 (Version 3)
Quarter: 2013Q4

REPORT INFORMATION
  Report Type: Spontaneous
  Country: US (occurrence: US)
  Receive Date: 20120711
  Receipt Date: 20131101
  Transmission Date: 20140711
  Serious: No
  Sender: FDA-Public Use
  Company Number: US-009507513-1207USA000379

PATIENT
  Sex: Male

DRUGS (3)
  1. VICTRELIS [Suspect]
     Indication: HEPATITIS C
     Dosage: 200 MG, TID
     Route: 048
     Dates: start: 201112
  2. RIBAVIRIN [Concomitant]
  3. PEGASYS [Suspect]

REACTIONS (2)
  - Aphthous stomatitis [Unknown]
  - Dry skin [Unknown]
